FAERS Safety Report 11870283 (Version 1)
Quarter: 2015Q4

REPORT INFORMATION
  Report Type: Spontaneous
  Country: JP (occurrence: JP)
  Receive Date: 20151228
  Receipt Date: 20151228
  Transmission Date: 20160305
  Serious: Yes (Hospitalization, Other)
  Sender: FDA-Public Use
  Company Number: PHJP2015JP021016

PATIENT
  Age: 81 Year
  Sex: Female

DRUGS (2)
  1. NEORAL [Suspect]
     Active Substance: CYCLOSPORINE
     Indication: PEMPHIGUS
     Dosage: 75 MG, QD
     Route: 048
  2. NEORAL [Suspect]
     Active Substance: CYCLOSPORINE
     Dosage: 100 MG, QD
     Route: 048

REACTIONS (7)
  - Aspergillus infection [Recovering/Resolving]
  - Pneumonia aspiration [Unknown]
  - Immunosuppressant drug level decreased [Unknown]
  - Interstitial lung disease [Unknown]
  - Product use issue [Unknown]
  - Cerebral infarction [Recovering/Resolving]
  - Altered state of consciousness [Recovering/Resolving]

NARRATIVE: CASE EVENT DATE: 201510
